FAERS Safety Report 6807603-5 (Version None)
Quarter: 2010Q2

REPORT INFORMATION
  Report Type: 
  Country: None (occurrence: None)
  Receive Date: 20100625
  Receipt Date: 20100614
  Transmission Date: 20101027
  Serious: Yes (Death, Other)
  Sender: FDA-Public Use
  Company Number: 2010060038

PATIENT
  Age: 46 Year
  Sex: Male

DRUGS (6)
  1. SOMA (CARISOPRODOL, USP (CARISPRODOL) [Suspect]
  2. ACTIQ [Suspect]
     Dosage: BU
     Route: 002
  3. LORTAB [Suspect]
  4. PERCOCET [Suspect]
  5. METHADOSE [Suspect]
  6. VALIUM [Suspect]

REACTIONS (13)
  - ARTERIOSCLEROSIS [None]
  - BRAIN INJURY [None]
  - CARDIO-RESPIRATORY ARREST [None]
  - DRUG ABUSE [None]
  - DRUG DEPENDENCE [None]
  - DRUG SCREEN POSITIVE [None]
  - DRUG TOXICITY [None]
  - INJURY [None]
  - LETHARGY [None]
  - MULTIPLE DRUG OVERDOSE ACCIDENTAL [None]
  - NO THERAPEUTIC RESPONSE [None]
  - RESPIRATION ABNORMAL [None]
  - UNRESPONSIVE TO STIMULI [None]
